FAERS Safety Report 5823843-6 (Version None)
Quarter: 2008Q3

REPORT INFORMATION
  Report Type: 
  Country: None (occurrence: None)
  Receive Date: 20080725
  Receipt Date: 20080715
  Transmission Date: 20090109
  Serious: Yes (Disabling)
  Sender: FDA-Public Use
  Company Number: JP-PFIZER INC-2008060571

PATIENT
  Age: 73 Year
  Sex: Male

DRUGS (9)
  1. CHANTIX [Suspect]
     Indication: SMOKING CESSATION THERAPY
     Dosage: DAILY DOSE:1MG
     Route: 048
  2. ADALAT [Concomitant]
     Route: 048
  3. VALSARTAN [Concomitant]
     Route: 048
  4. NATRIX [Concomitant]
     Route: 048
  5. CARDENALIN [Concomitant]
     Route: 048
  6. LIVALO [Concomitant]
     Route: 048
  7. ALLOPURINOL [Concomitant]
     Route: 048
  8. FAMOTIDINE [Concomitant]
     Route: 048
  9. PREDONINE [Concomitant]
     Route: 048

REACTIONS (1)
  - GOUT [None]
